FAERS Safety Report 5087322-9 (Version None)
Quarter: 2006Q3

REPORT INFORMATION
  Report Type: 
  Country: None (occurrence: None)
  Receive Date: 20060824
  Receipt Date: 20060605
  Transmission Date: 20061208
  Serious: Yes (Other)
  Sender: FDA-Public Use
  Company Number: US-BAYER-200612425BCC

PATIENT
  Age: 38 Year
  Sex: Female
  Weight: 79 kg

DRUGS (2)
  1. RID MOUSSE [Suspect]
     Indication: LICE INFESTATION
     Route: 061
     Dates: start: 20060101
  2. PROZAC [Concomitant]

REACTIONS (2)
  - PHARYNGEAL HAEMORRHAGE [None]
  - PURULENT DISCHARGE [None]
